FAERS Safety Report 6608323-2 (Version None)
Quarter: 2010Q1

REPORT INFORMATION
  Report Type: 
  Country: None (occurrence: None)
  Receive Date: 20100301
  Receipt Date: 20100222
  Transmission Date: 20100710
  Serious: Yes (Hospitalization)
  Sender: FDA-Public Use
  Company Number: US-SANOFI-AVENTIS-2010SA010570

PATIENT
  Age: 54 Year
  Sex: Male

DRUGS (3)
  1. MULTAQ [Suspect]
     Indication: ATRIAL FIBRILLATION
     Route: 048
     Dates: start: 20091101, end: 20100101
  2. ASPIRIN [Concomitant]
  3. DRUG USED IN DIABETES [Concomitant]

REACTIONS (1)
  - ATRIAL FIBRILLATION [None]
